FAERS Safety Report 8610509-2 (Version None)
Quarter: 2012Q3

REPORT INFORMATION
  Report Type: 
  Country: None (occurrence: None)
  Receive Date: 20120423
  Receipt Date: 20100409
  Transmission Date: 20120928
  Serious: Yes (Other)
  Sender: FDA-Public Use
  Company Number: PHHY2010US21575

PATIENT
  Age: 56 Year
  Sex: Female

DRUGS (2)
  1. ADVAIR HFA [Concomitant]
  2. FEMARA [Suspect]
     Dosage: 2.5 MG
     Dates: start: 20081201, end: 20090801

REACTIONS (5)
  - ARTHRITIS [None]
  - BONE PAIN [None]
  - ARTHROPATHY [None]
  - PAIN IN EXTREMITY [None]
  - ARTHRALGIA [None]
